FAERS Safety Report 11078561 (Version 1)
Quarter: 2015Q2

REPORT INFORMATION
  Report Type: Spontaneous
  Country: FR (occurrence: FR)
  Receive Date: 20150430
  Receipt Date: 20150430
  Transmission Date: 20150821
  Serious: Yes (Other)
  Sender: FDA-Public Use
  Company Number: FR-EUSA PHARMA-2015-FR-005918

PATIENT

DRUGS (3)
  1. DAUNORUBICIN [Concomitant]
     Active Substance: DAUNORUBICIN
     Dosage: 37 MG, UNK
  2. ERWINASE [Suspect]
     Active Substance: ASPARAGINASE ERWINIA CHRYSANTHEMI
     Indication: ACUTE LYMPHOCYTIC LEUKAEMIA
     Dosage: 25000 IU/M2, UNK
     Route: 042
     Dates: start: 20140926, end: 20150313
  3. VINCRISTINE [Concomitant]
     Active Substance: VINCRISTINE
     Dosage: 1.8 MG, UNK
     Route: 042

REACTIONS (2)
  - Lip oedema [Recovering/Resolving]
  - Urticaria [Recovering/Resolving]

NARRATIVE: CASE EVENT DATE: 20150313
